FAERS Safety Report 20328773 (Version 1)
Quarter: 2022Q1

REPORT INFORMATION
  Report Type: Spontaneous
  Country: US (occurrence: None)
  Receive Date: 20220112
  Receipt Date: 20220112
  Transmission Date: 20220423
  Serious: Yes (Other)
  Sender: FDA-Public Use
  Company Number: None

PATIENT
  Age: 55 Year
  Sex: Female
  Weight: 60.2 kg

DRUGS (20)
  1. INFED [Suspect]
     Active Substance: IRON DEXTRAN
     Indication: Iron deficiency anaemia
     Dosage: FREQUENCY : ONCE;?
     Route: 041
     Dates: start: 20211222, end: 20211222
  2. Plavis 75mg once daily [Concomitant]
  3. Calcium Citrate + D 315mg-5mcg twice daily [Concomitant]
  4. Nurtec ODT 75mg as needed [Concomitant]
  5. Amlodipine 5mg once daily [Concomitant]
  6. aspirin 81mg once daily [Concomitant]
  7. ferrous sulfate 325mg once daily [Concomitant]
  8. Vitamin B-2 100mg once daily [Concomitant]
  9. Fish Oil 300-1000mg once daily [Concomitant]
  10. triamcinolone acetonide 0.025% ointment as needed [Concomitant]
  11. diclofenac potassium 50mg as needed [Concomitant]
  12. Breo Ellipta 100-25mcg 1 puff daily [Concomitant]
  13. Atorvastatin 40mg once daily [Concomitant]
  14. folic acid 800mg once daily [Concomitant]
  15. Lisinopil 2.5 mg once daily [Concomitant]
  16. Aimovig 70mg once monthly [Concomitant]
  17. Synthroid 75mcg once daily [Concomitant]
  18. Pantoprazole 40mg once daily [Concomitant]
  19. Vitamin D 225mcg once daily [Concomitant]
  20. Vitamin C 500mg once daily [Concomitant]

REACTIONS (2)
  - Infusion related reaction [None]
  - Drug hypersensitivity [None]

NARRATIVE: CASE EVENT DATE: 20211222
